FAERS Safety Report 9177783 (Version 1)
Quarter: 2012Q4

REPORT INFORMATION
  Report Type: 
  Country: US (occurrence: US)
  Receive Date: 20121011
  Receipt Date: 20121011
  Transmission Date: 20130627
  Serious: Yes (Life-Threatening, Other)
  Sender: FDA-Public Use
  Company Number: US-RB-045374-12

PATIENT
  Age: 26 None
  Sex: Female

DRUGS (1)
  1. SUBOXONE FILM [Suspect]
     Indication: PRODUCT USED FOR UNKNOWN INDICATION
     Dosage: Suboxone film
     Route: 065
     Dates: start: 201109

REACTIONS (3)
  - Uterine haemorrhage [Recovered/Resolved]
  - Anaemia [Unknown]
  - Exposure during pregnancy [Recovered/Resolved]
